FAERS Safety Report 9243364 (Version 2)
Quarter: 2013Q2

REPORT INFORMATION
  Report Type: Spontaneous
  Country: FR (occurrence: FR)
  Receive Date: 20130420
  Receipt Date: 20130429
  Transmission Date: 20140414
  Serious: Yes (Hospitalization)
  Sender: FDA-Public Use
  Company Number: FR-B.I. PHARMACEUTICALS,INC./RIDGEFIELD-2013-FF-01194FF

PATIENT
  Age: 75 Year
  Sex: Female

DRUGS (7)
  1. PRADAXA [Suspect]
     Dosage: 220 MG
     Route: 048
     Dates: start: 201209, end: 20130207
  2. LOXEN [Concomitant]
     Dosage: 50 MG
     Route: 048
  3. ESIDREX [Concomitant]
     Dosage: 25 MG
     Route: 048
     Dates: end: 20130220
  4. COVERSYL [Concomitant]
     Dosage: 8 MG
     Route: 048
     Dates: end: 20130219
  5. KEPPRA [Concomitant]
     Dosage: 1000 MG
     Route: 048
  6. MIANSERINE [Concomitant]
     Route: 048
  7. FORLAX [Concomitant]
     Route: 048

REACTIONS (3)
  - Rectal haemorrhage [Recovered/Resolved]
  - Haemoglobin decreased [Recovered/Resolved]
  - Melaena [Recovered/Resolved]
